FAERS Safety Report 14512137 (Version 2)
Quarter: 2018Q1

REPORT INFORMATION
  Report Type: Spontaneous
  Country: US (occurrence: US)
  Receive Date: 20180209
  Receipt Date: 20180212
  Transmission Date: 20180509
  Serious: No
  Sender: FDA-Public Use
  Company Number: US-GILEAD-2018-0320068

PATIENT
  Sex: Male

DRUGS (1)
  1. EPCLUSA [Suspect]
     Active Substance: SOFOSBUVIR\VELPATASVIR
     Indication: CHRONIC HEPATITIS C
     Dosage: 1 DF, UNK
     Route: 048
     Dates: start: 20180103

REACTIONS (4)
  - Drug dispensing error [Recovered/Resolved]
  - Intentional dose omission [Recovered/Resolved]
  - Wrong patient received medication [Recovered/Resolved]
  - Intentional product use issue [Recovered/Resolved]
